FAERS Safety Report 6404366-2 (Version None)
Quarter: 2009Q4

REPORT INFORMATION
  Report Type: 
  Country: None (occurrence: None)
  Receive Date: 20091013
  Receipt Date: 20090202
  Transmission Date: 20100525
  Serious: Yes (Hospitalization)
  Sender: FDA-Public Use
  Company Number: 000357

PATIENT
  Sex: Male
  Weight: 75 kg

DRUGS (6)
  1. NEUPRO [Suspect]
     Indication: PARKINSON'S DISEASE
     Dosage: (6 MG QD TRANSDERMAL) ; (8 MG QD TRANSDERMAL)
     Route: 062
     Dates: start: 20060824, end: 20080828
  2. NEUPRO [Suspect]
     Indication: PARKINSON'S DISEASE
     Dosage: (6 MG QD TRANSDERMAL) ; (8 MG QD TRANSDERMAL)
     Route: 062
     Dates: start: 20080829
  3. ATACAND HCT [Concomitant]
  4. ASPIRIN [Concomitant]
  5. AMITRIPTYLINE [Concomitant]
  6. RAMIPRIL [Concomitant]

REACTIONS (2)
  - FALL [None]
  - SKIN INJURY [None]
